FAERS Safety Report 10279825 (Version 2)
Quarter: 2014Q3

REPORT INFORMATION
  Report Type: Spontaneous
  Country: US (occurrence: US)
  Receive Date: 20140707
  Receipt Date: 20140707
  Transmission Date: 20150326
  Serious: Yes (Hospitalization)
  Sender: FDA-Public Use
  Company Number: US-SA-2014SA081796

PATIENT
  Age: 83 Year
  Sex: Female

DRUGS (1)
  1. CEREZYME [Suspect]
     Active Substance: IMIGLUCERASE
     Indication: GAUCHER^S DISEASE
     Dosage: DOSE: 60 U PER KG
     Route: 042
     Dates: start: 19990731

REACTIONS (3)
  - Mobility decreased [Unknown]
  - Pulmonary oedema [Unknown]
  - Joint swelling [Unknown]

NARRATIVE: CASE EVENT DATE: 20140623
